FAERS Safety Report 9789069 (Version 2)
Quarter: 2014Q1

REPORT INFORMATION
  Report Type: Spontaneous
  Country: NL (occurrence: NL)
  Receive Date: 20131230
  Receipt Date: 20140111
  Transmission Date: 20141002
  Serious: Yes (Death)
  Sender: FDA-Public Use
  Company Number: NL-009507513-1312NLD012170

PATIENT
  Age: 65 Year
  Sex: Female
  Weight: 58 kg

DRUGS (3)
  1. MIRTAZAPINE [Suspect]
     Indication: INSOMNIA
     Dosage: 1 TIMES PER 1 DAYS, 15 MG,
     Route: 048
     Dates: start: 20131217
  2. MIRTAZAPINE [Suspect]
     Indication: DEPRESSION
  3. OXAZEPAM [Concomitant]
     Dosage: 1 TIMES PER 1 DAYS,10 MG,
     Route: 048
     Dates: start: 20131217

REACTIONS (1)
  - Death [Fatal]
